FAERS Safety Report 22152788 (Version 1)
Quarter: 2023Q1

REPORT INFORMATION
  Report Type: Spontaneous
  Country: BR (occurrence: BR)
  Receive Date: 20230329
  Receipt Date: 20230329
  Transmission Date: 20230417
  Serious: Yes (Hospitalization, Other)
  Sender: FDA-Public Use
  Company Number: BR-BAYER-2023A037378

PATIENT
  Age: 37 Year
  Sex: Female

DRUGS (2)
  1. KYLEENA [Suspect]
     Active Substance: LEVONORGESTREL
     Dosage: 17.5?G/DAY
     Route: 015
     Dates: start: 202208
  2. DICLOFENAC [Concomitant]
     Active Substance: DICLOFENAC

REACTIONS (11)
  - Syncope [None]
  - Abdominal pain lower [None]
  - Post procedural haemorrhage [None]
  - Genital haemorrhage [Recovered/Resolved]
  - Intermenstrual bleeding [None]
  - Vaginal discharge [None]
  - Dyspareunia [None]
  - Coital bleeding [None]
  - Rosacea [None]
  - Acne [None]
  - Urinary tract infection [None]

NARRATIVE: CASE EVENT DATE: 20220801
